FAERS Safety Report 10954210 (Version 5)
Quarter: 2015Q2

REPORT INFORMATION
  Report Type: Spontaneous
  Country: US (occurrence: US)
  Receive Date: 20150325
  Receipt Date: 20150430
  Transmission Date: 20150821
  Serious: Yes (Life-Threatening, Other)
  Sender: FDA-Public Use
  Company Number: US-MERCK-1503USA009522

PATIENT
  Age: 55 Year
  Sex: Male

DRUGS (6)
  1. NORCO [Concomitant]
     Active Substance: ACETAMINOPHEN\HYDROCODONE BITARTRATE
  2. KEYTRUDA [Suspect]
     Active Substance: PEMBROLIZUMAB
     Indication: MALIGNANT MELANOMA
     Dosage: 200 ML, Q3W
     Route: 042
     Dates: start: 20141222, end: 20150114
  3. NYSTATIN. [Concomitant]
     Active Substance: NYSTATIN
  4. METOPROLOL [Concomitant]
     Active Substance: METOPROLOL
  5. DEXAMETHASONE. [Concomitant]
     Active Substance: DEXAMETHASONE
     Dosage: TAPERING DOSE
     Dates: start: 20140725
  6. PROCHLORPERAZINE. [Concomitant]
     Active Substance: PROCHLORPERAZINE

REACTIONS (9)
  - Hyperbilirubinaemia [Recovering/Resolving]
  - Oral infection [Recovering/Resolving]
  - Transaminases increased [Recovering/Resolving]
  - Nasal congestion [Recovering/Resolving]
  - Dry mouth [Recovering/Resolving]
  - Malignant neoplasm progression [Recovering/Resolving]
  - Blood lactate dehydrogenase decreased [Recovering/Resolving]
  - Muscular weakness [Recovering/Resolving]
  - Rhinorrhoea [Recovering/Resolving]

NARRATIVE: CASE EVENT DATE: 201412
